FAERS Safety Report 16701279 (Version 2)
Quarter: 2019Q3

REPORT INFORMATION
  Report Type: Spontaneous
  Country: US (occurrence: US)
  Receive Date: 20190814
  Receipt Date: 20190904
  Transmission Date: 20191004
  Serious: No
  Sender: FDA-Public Use
  Company Number: US-BAYER-2019-150561

PATIENT
  Age: 36 Year
  Sex: Female
  Weight: 88 kg

DRUGS (3)
  1. SKYLA [Suspect]
     Active Substance: LEVONORGESTREL
     Indication: CONTRACEPTION
     Dosage: 14 MCG/24HR, CONT
     Route: 015
     Dates: start: 20190724, end: 20190724
  2. FLUCONAZOLE. [Concomitant]
     Active Substance: FLUCONAZOLE
     Dosage: UNK
     Dates: start: 20190719
  3. SKYLA [Suspect]
     Active Substance: LEVONORGESTREL
     Indication: CONTRACEPTION
     Dosage: 14 MCG/24HR, CONT
     Route: 015
     Dates: start: 20160824, end: 20190724

REACTIONS (7)
  - Procedural pain [Recovered/Resolved]
  - Complication of device insertion [None]
  - Procedural vomiting [Recovered/Resolved]
  - Presyncope [Recovered/Resolved]
  - Screaming [Recovered/Resolved]
  - Abdominal pain lower [Recovered/Resolved]
  - Amenorrhoea [None]

NARRATIVE: CASE EVENT DATE: 20190724
